FAERS Safety Report 8270227-X (Version None)
Quarter: 2012Q2

REPORT INFORMATION
  Report Type: 
  Country: None (occurrence: None)
  Receive Date: 20120410
  Receipt Date: 20120405
  Transmission Date: 20120825
  Serious: Yes (Death)
  Sender: FDA-Public Use
  Company Number: PH-BAYER-2011-029901

PATIENT
  Age: 30 Year
  Sex: Male

DRUGS (2)
  1. BARACLUDE [Concomitant]
     Indication: HEPATITIS B
     Dosage: DAILY DOSE .5 NOT APPL.
     Dates: start: 20101001, end: 20110326
  2. NEXAVAR [Suspect]
     Indication: HEPATIC NEOPLASM MALIGNANT

REACTIONS (1)
  - SEPSIS [None]
